FAERS Safety Report 7079685-X (Version None)
Quarter: 2010Q4

REPORT INFORMATION
  Report Type: 
  Country: None (occurrence: None)
  Receive Date: 20101102
  Receipt Date: 20101025
  Transmission Date: 20110411
  Serious: Yes (Hospitalization)
  Sender: FDA-Public Use
  Company Number: PHHY2010FR55761

PATIENT
  Age: 31 Year
  Sex: Male

DRUGS (5)
  1. LEPONEX [Suspect]
     Indication: MENTAL DISORDER
     Dosage: 100 MG, QD
     Route: 048
  2. LEPONEX [Suspect]
     Dosage: 400 MG, DAILY
     Dates: start: 20100601
  3. TERALITHE [Concomitant]
  4. TERCIAN [Concomitant]
  5. RIVOTRIL [Concomitant]

REACTIONS (5)
  - CONSTIPATION [None]
  - FAECALITH [None]
  - FLATULENCE [None]
  - SALIVARY HYPERSECRETION [None]
  - WEIGHT INCREASED [None]
